FAERS Safety Report 17543635 (Version 1)
Quarter: 2020Q1

REPORT INFORMATION
  Report Type: Spontaneous
  Country: US (occurrence: US)
  Receive Date: 20200316
  Receipt Date: 20200316
  Transmission Date: 20200409
  Serious: Yes (Other)
  Sender: FDA-Public Use
  Company Number: US-SA-2020SA064992

PATIENT
  Sex: Female

DRUGS (1)
  1. ZANTAC [Suspect]
     Active Substance: RANITIDINE HYDROCHLORIDE
     Dosage: UNK UNK, BID
     Dates: start: 2006, end: 2017

REACTIONS (8)
  - Renal cancer [Unknown]
  - Metastases to liver [Unknown]
  - Anxiety [Unknown]
  - Impaired quality of life [Unknown]
  - Mental disorder [Unknown]
  - Colon cancer [Unknown]
  - Pain [Unknown]
  - Emotional distress [Unknown]
